FAERS Safety Report 18177565 (Version 2)
Quarter: 2020Q3

REPORT INFORMATION
  Report Type: Spontaneous
  Country: US (occurrence: US)
  Receive Date: 20200820
  Receipt Date: 20200824
  Transmission Date: 20201103
  Serious: No
  Sender: FDA-Public Use
  Company Number: US-PFIZER INC-2020322396

PATIENT
  Age: 52 Year
  Sex: Female
  Weight: 83.91 kg

DRUGS (1)
  1. PREMARIN [Suspect]
     Active Substance: ESTROGENS, CONJUGATED
     Indication: MENOPAUSE
     Dosage: UNK UNK, 2X/WEEK (1/2GRAM NOT SURE IF GRAM IS CORRECT, INSERTED VAGINALLY TWICE A WEEK)
     Route: 067

REACTIONS (2)
  - Urine abnormality [Unknown]
  - Urine analysis abnormal [Unknown]
